FAERS Safety Report 24215771 (Version 2)
Quarter: 2024Q4

REPORT INFORMATION
  Report Type: Spontaneous
  Country: US (occurrence: US)
  Receive Date: 20240816
  Receipt Date: 20241223
  Transmission Date: 20250115
  Serious: Yes (Other)
  Sender: ELI LILLY AND COMPANY
  Company Number: US-ELI_LILLY_AND_COMPANY-US202408004851

PATIENT
  Age: 50 Year
  Sex: Female

DRUGS (20)
  1. TRULICITY [Suspect]
     Active Substance: DULAGLUTIDE
     Indication: Diabetes mellitus management
     Dosage: 1.5 MG, WEEKLY (1/W)
     Route: 065
     Dates: start: 20160520, end: 20210628
  2. TRULICITY [Suspect]
     Active Substance: DULAGLUTIDE
     Indication: Type 2 diabetes mellitus
     Dosage: 7.5 MG, WEEKLY (1/W)
     Route: 065
     Dates: start: 20180709, end: 20200607
  3. TRULICITY [Suspect]
     Active Substance: DULAGLUTIDE
     Dosage: 3 MG, WEEKLY (1/W)
     Route: 065
     Dates: start: 20210629, end: 20211128
  4. TRULICITY [Suspect]
     Active Substance: DULAGLUTIDE
     Dosage: 4.5 MG, WEEKLY (1/W)
     Route: 065
     Dates: start: 20211129, end: 20220821
  5. MOUNJARO [Suspect]
     Active Substance: TIRZEPATIDE
     Indication: Diabetes mellitus management
     Dosage: 7.5 MG, WEEKLY (1/W)
     Route: 065
     Dates: start: 20180709, end: 20200607
  6. MOUNJARO [Suspect]
     Active Substance: TIRZEPATIDE
     Indication: Diabetes mellitus management
     Dosage: 7.5 MG, WEEKLY (1/W)
     Route: 065
     Dates: start: 20180709, end: 20200607
  7. MOUNJARO [Suspect]
     Active Substance: TIRZEPATIDE
     Indication: Diabetes mellitus management
     Dosage: 7.5 MG, WEEKLY (1/W)
     Route: 065
     Dates: start: 20180709, end: 20200607
  8. MOUNJARO [Suspect]
     Active Substance: TIRZEPATIDE
     Indication: Diabetes mellitus management
     Dosage: 7.5 MG, WEEKLY (1/W)
     Route: 065
     Dates: start: 20180709, end: 20200607
  9. MOUNJARO [Suspect]
     Active Substance: TIRZEPATIDE
     Indication: Type 2 diabetes mellitus
     Dosage: UNK UNK, UNKNOWN
     Route: 065
     Dates: start: 20220822, end: 20231106
  10. MOUNJARO [Suspect]
     Active Substance: TIRZEPATIDE
     Indication: Type 2 diabetes mellitus
     Dosage: UNK UNK, UNKNOWN
     Route: 065
     Dates: start: 20220822, end: 20231106
  11. MOUNJARO [Suspect]
     Active Substance: TIRZEPATIDE
     Indication: Type 2 diabetes mellitus
     Dosage: UNK UNK, UNKNOWN
     Route: 065
     Dates: start: 20220822, end: 20231106
  12. MOUNJARO [Suspect]
     Active Substance: TIRZEPATIDE
     Indication: Type 2 diabetes mellitus
     Dosage: UNK UNK, UNKNOWN
     Route: 065
     Dates: start: 20220822, end: 20231106
  13. ATORVASTATIN [Concomitant]
     Active Substance: ATORVASTATIN
     Indication: Hypertension
     Dosage: UNK
  14. PROPRANOLOL [Concomitant]
     Active Substance: PROPRANOLOL HYDROCHLORIDE
     Indication: Blood disorder
     Dosage: UNK
  15. PANTOPRAZOLE [Concomitant]
     Active Substance: PANTOPRAZOLE
     Indication: Gastrointestinal disorder
     Dosage: UNK
  16. METOCLOPRAMIDE [Concomitant]
     Active Substance: METOCLOPRAMIDE
     Indication: Gastrointestinal disorder
     Dosage: UNK
  17. ONDANSETRON [Concomitant]
     Active Substance: ONDANSETRON
     Indication: Gastrointestinal disorder
     Dosage: UNK
  18. METFORMIN [Concomitant]
     Active Substance: METFORMIN HYDROCHLORIDE
     Indication: Diabetes mellitus
     Dosage: UNK
  19. LISINOPRIL [Concomitant]
     Active Substance: LISINOPRIL
     Indication: Fluid retention
     Dosage: UNK
  20. FAMOTIDINE [Concomitant]
     Active Substance: FAMOTIDINE
     Indication: Gastrointestinal disorder
     Dosage: UNK

REACTIONS (6)
  - Impaired gastric emptying [Not Recovered/Not Resolved]
  - Nausea [Not Recovered/Not Resolved]
  - Vomiting [Not Recovered/Not Resolved]
  - Abdominal pain [Not Recovered/Not Resolved]
  - Constipation [Not Recovered/Not Resolved]
  - Decreased appetite [Not Recovered/Not Resolved]

NARRATIVE: CASE EVENT DATE: 20200214
